FAERS Safety Report 6134642-2 (Version None)
Quarter: 2009Q1

REPORT INFORMATION
  Report Type: 
  Country: None (occurrence: None)
  Receive Date: 20090327
  Receipt Date: 20090317
  Transmission Date: 20090719
  Serious: Yes (Hospitalization)
  Sender: FDA-Public Use
  Company Number: US-BIOGENIDEC-2008BI029548

PATIENT
  Age: 53 Year
  Sex: Female

DRUGS (1)
  1. AVONEX [Suspect]
     Indication: MULTIPLE SCLEROSIS
     Route: 030
     Dates: start: 20061019

REACTIONS (7)
  - DIABETES MELLITUS [None]
  - DIARRHOEA [None]
  - GANGRENE [None]
  - HYPOGLYCAEMIC COMA [None]
  - OVERDOSE [None]
  - PNEUMONIA [None]
  - SKIN FISSURES [None]
